FAERS Safety Report 7417661-5 (Version None)
Quarter: 2011Q2

REPORT INFORMATION
  Report Type: 
  Country: None (occurrence: None)
  Receive Date: 20110415
  Receipt Date: 20110408
  Transmission Date: 20111010
  Serious: Yes (Hospitalization)
  Sender: FDA-Public Use
  Company Number: US-ALEXION PHARMACEUTICALS INC.-A201001484

PATIENT
  Sex: Male

DRUGS (13)
  1. VITAMINS [Concomitant]
     Dosage: UNK
  2. PREDNISONE [Concomitant]
     Dosage: 5 MG, QD
  3. REVLIMID [Suspect]
     Dosage: 5 MG, QD
     Dates: end: 20101004
  4. PROSCAR [Concomitant]
     Dosage: 5 MG, QD
  5. VITAMIN B-12 [Concomitant]
     Dosage: 1000 UG, QD
  6. COUMADIN [Concomitant]
     Dosage: 10 MG, QD
  7. CIPROFLOXACIN [Concomitant]
     Dosage: 250 MG, BID
  8. SYNTHROID [Concomitant]
     Dosage: 75 MG, QD
  9. SOLIRIS [Suspect]
     Indication: PAROXYSMAL NOCTURNAL HAEMOGLOBINURIA
     Dosage: 600 MG, QW
     Route: 042
     Dates: start: 20101104
  10. NEXIUM [Concomitant]
     Dosage: 40 MG, QD
  11. FOLIC ACID [Concomitant]
     Dosage: 1 MG, QD
  12. METOPROLOL TARTRATE [Concomitant]
     Indication: BLOOD PRESSURE
     Dosage: 25
  13. SENNA-S [Concomitant]
     Indication: CONSTIPATION
     Dosage: UNK

REACTIONS (5)
  - FALL [None]
  - CELLULITIS [None]
  - EXCORIATION [None]
  - DEVICE OCCLUSION [None]
  - WHITE BLOOD CELL COUNT DECREASED [None]
